FAERS Safety Report 5869767-X (Version None)
Quarter: 2008Q3

REPORT INFORMATION
  Report Type: 
  Country: None (occurrence: None)
  Receive Date: 20080904
  Receipt Date: 20080826
  Transmission Date: 20090109
  Serious: Yes (Hospitalization)
  Sender: FDA-Public Use
  Company Number: DE-TEVA-176708ISR

PATIENT
  Sex: Male

DRUGS (7)
  1. TERAZOSIN HCL [Suspect]
     Indication: BENIGN PROSTATIC HYPERPLASIA
     Route: 048
     Dates: start: 20041001, end: 20080225
  2. AMISULPRIDE [Concomitant]
     Route: 048
     Dates: start: 20040101, end: 20070814
  3. AMISULPRIDE [Concomitant]
     Dates: start: 20070815, end: 20080110
  4. AMISULPRIDE [Concomitant]
     Dates: start: 20080111
  5. BIPERIDEN HYDROCHLORIDE TAB [Concomitant]
     Indication: SCHIZOPHRENIA, PARANOID TYPE
     Route: 048
     Dates: start: 20041008
  6. DORZOLAMIDE HYDROCHLORIDE [Concomitant]
     Indication: GLAUCOMA
     Route: 047
     Dates: start: 20030101
  7. SODIUM PICOSULFATE [Concomitant]
     Indication: CONSTIPATION
     Route: 048

REACTIONS (1)
  - AUTOIMMUNE THROMBOCYTOPENIA [None]
